FAERS Safety Report 20740708 (Version 1)
Quarter: 2022Q2

REPORT INFORMATION
  Report Type: Spontaneous
  Country: None (occurrence: FR)
  Receive Date: 20220422
  Receipt Date: 20220422
  Transmission Date: 20220720
  Serious: Yes (Life-Threatening, Hospitalization)
  Sender: FDA-Public Use
  Company Number: FR-Nostrum Laboratories, Inc.-2128082

PATIENT
  Age: 38 Year
  Sex: Female

DRUGS (4)
  1. TRAMADOL HYDROCHLORIDE AND ACETAMINOPHEN [Suspect]
     Active Substance: ACETAMINOPHEN\TRAMADOL HYDROCHLORIDE
     Indication: Pain prophylaxis
     Route: 065
  2. SERTRALINE [Interacting]
     Active Substance: SERTRALINE HYDROCHLORIDE
     Route: 048
  3. DIAZEPAM [Interacting]
     Active Substance: DIAZEPAM
     Route: 048
  4. VALPROIC ACID [Interacting]
     Active Substance: VALPROIC ACID
     Route: 065

REACTIONS (6)
  - Accidental overdose [Recovered/Resolved]
  - Respiratory depression [Recovered/Resolved]
  - Coma [Recovered/Resolved]
  - Rhabdomyolysis [Recovered/Resolved]
  - Hepatitis [Recovered/Resolved]
  - Serotonin syndrome [Recovered/Resolved]
